FAERS Safety Report 6555419-X (Version None)
Quarter: 2010Q1

REPORT INFORMATION
  Report Type: 
  Country: None (occurrence: None)
  Receive Date: 20100128
  Receipt Date: 20091026
  Transmission Date: 20100710
  Serious: No
  Sender: FDA-Public Use
  Company Number: A0814228A

PATIENT
  Age: 43 Year
  Sex: Female
  Weight: 50 kg

DRUGS (3)
  1. WELLBUTRIN [Suspect]
     Indication: DEPRESSION
     Route: 048
     Dates: start: 20090901, end: 20090901
  2. VYVANSE [Suspect]
     Indication: ATTENTION DEFICIT/HYPERACTIVITY DISORDER
     Dosage: 70MG PER DAY
     Route: 048
     Dates: start: 20080101
  3. KLONOPIN [Suspect]
     Indication: DEPRESSION
     Route: 048
     Dates: start: 20080101

REACTIONS (1)
  - DEPRESSION [None]
